FAERS Safety Report 12633885 (Version 1)
Quarter: 2016Q3

REPORT INFORMATION
  Report Type: Spontaneous
  Country: US (occurrence: None)
  Receive Date: 20160808
  Receipt Date: 20160808
  Transmission Date: 20161109
  Serious: No
  Sender: FDA-Public Use
  Company Number: None

PATIENT
  Age: 81 Year
  Sex: Female
  Weight: 90.72 kg

DRUGS (7)
  1. TOPIRAMATE - EQUIVELANT OF TOPAMAX [Suspect]
     Active Substance: TOPIRAMATE
     Indication: TRIGEMINAL NEURALGIA
     Dosage: 1 TABLET AT BEDTIME FOR 1 WEEK - 1 TAB MORN BY MOUTH?THEN 2 TAB AT BEDTIME - THEN 2 TAB - 2X/DAY
     Route: 048
     Dates: start: 20160525, end: 20160603
  2. LISINOPRIL AND HYDROCHLOROTHIAZIDE [Concomitant]
     Active Substance: HYDROCHLOROTHIAZIDE\LISINOPRIL
  3. SYNTHROID [Concomitant]
     Active Substance: LEVOTHYROXINE SODIUM
  4. ASPIRIN. [Concomitant]
     Active Substance: ASPIRIN
  5. METOPROLOL SUCC ER [Concomitant]
     Active Substance: METOPROLOL SUCCINATE
  6. PRAVASTATIN. [Concomitant]
     Active Substance: PRAVASTATIN
  7. DOXYCYC MONO [Concomitant]

REACTIONS (5)
  - Weight decreased [None]
  - Nausea [None]
  - Decreased appetite [None]
  - Dysgeusia [None]
  - Fatigue [None]
